FAERS Safety Report 24669477 (Version 1)
Quarter: 2024Q4

REPORT INFORMATION
  Report Type: Spontaneous
  Country: BR (occurrence: BR)
  Receive Date: 20241127
  Receipt Date: 20241127
  Transmission Date: 20250115
  Serious: Yes (Hospitalization, Other)
  Sender: SANOFI AVENTIS
  Company Number: BR-SA-2024SA347224

PATIENT
  Age: 38 Year
  Sex: Female

DRUGS (1)
  1. DUPILUMAB [Suspect]
     Active Substance: DUPILUMAB
     Dosage: UNK, 1X
     Route: 065
     Dates: start: 20241114, end: 20241114

REACTIONS (5)
  - Peripheral swelling [Unknown]
  - Blister [Unknown]
  - Infection [Unknown]
  - Dermatitis exfoliative generalised [Unknown]
  - Pruritus [Recovering/Resolving]

NARRATIVE: CASE EVENT DATE: 20241101
